FAERS Safety Report 23211202 (Version 1)
Quarter: 2023Q4

REPORT INFORMATION
  Report Type: Spontaneous
  Country: US (occurrence: US)
  Receive Date: 20231121
  Receipt Date: 20231121
  Transmission Date: 20240110
  Serious: No
  Sender: FDA-Public Use
  Company Number: US-SA-SAC20231120000052

PATIENT
  Age: 48 Year
  Sex: Female

DRUGS (1)
  1. DUPIXENT [Suspect]
     Active Substance: DUPILUMAB
     Indication: Neurodermatitis
     Dosage: DOSE AND FREQUENCY: - 600MG/ DAY 1 ROUTE: - UNDER THE SKIN
     Route: 058
     Dates: start: 20231103, end: 20231103

REACTIONS (1)
  - Chapped lips [Unknown]

NARRATIVE: CASE EVENT DATE: 20231111
